FAERS Safety Report 25325180 (Version 1)
Quarter: 2025Q2

REPORT INFORMATION
  Report Type: Spontaneous
  Country: US (occurrence: None)
  Receive Date: 20250516
  Receipt Date: 20250516
  Transmission Date: 20250717
  Serious: Yes (Hospitalization)
  Sender: FDA-CTU
  Company Number: None

PATIENT
  Sex: Female

DRUGS (7)
  1. AVONEX [Suspect]
     Active Substance: INTERFERON BETA-1A
     Indication: Multiple sclerosis
     Dates: start: 20210420
  2. AVONEX PREFL KIT 30MCG [Concomitant]
  3. IBACLOFEN TAB [Concomitant]
  4. MULTIVITAMINTAB WOMENS [Concomitant]
  5. PREGABALIN [Concomitant]
     Active Substance: PREGABALIN
  6. TOLTERODI NE CAP 4MG ER [Concomitant]
  7. TRIAMCINOLON CRE 0.025% [Concomitant]

REACTIONS (2)
  - Urinary tract infection [None]
  - Rehabilitation therapy [None]
